FAERS Safety Report 24715172 (Version 1)
Quarter: 2024Q4

REPORT INFORMATION
  Report Type: Spontaneous
  Country: US (occurrence: US)
  Receive Date: 20241210
  Receipt Date: 20241210
  Transmission Date: 20250115
  Serious: Yes (Other)
  Sender: AUROBINDO
  Company Number: US-AUROBINDO-AUR-APL-2024-058719

PATIENT
  Age: 24 Year
  Sex: Male

DRUGS (2)
  1. CAPTOPRIL [Suspect]
     Active Substance: CAPTOPRIL
     Indication: Acute kidney injury
     Dosage: UNK
     Route: 065
  2. CAPTOPRIL [Suspect]
     Active Substance: CAPTOPRIL
     Indication: Hypertension

REACTIONS (1)
  - Drug ineffective [Unknown]
